FAERS Safety Report 7277378-7 (Version None)
Quarter: 2011Q1

REPORT INFORMATION
  Report Type: 
  Country: None (occurrence: None)
  Receive Date: 20110203
  Receipt Date: 20110203
  Transmission Date: 20110831
  Serious: Yes (Disabling, Other)
  Sender: FDA-Public Use
  Company Number: None

PATIENT
  Sex: Female

DRUGS (1)
  1. DEXAMETHASONE [Suspect]
     Indication: ARTHRALGIA
     Dosage: 1CC - 4 MG. ONCE 8-19-10 INJECTION
     Route: 058
     Dates: start: 20100819

REACTIONS (4)
  - INJECTION SITE ERYTHEMA [None]
  - INJECTION SITE WARMTH [None]
  - INJECTION SITE SWELLING [None]
  - IMPAIRED HEALING [None]
